FAERS Safety Report 9969230 (Version 1)
Quarter: 2014Q1

REPORT INFORMATION
  Report Type: Spontaneous
  Country: US (occurrence: US)
  Receive Date: 20140306
  Receipt Date: 20140306
  Transmission Date: 20141002
  Serious: No
  Sender: FDA-Public Use
  Company Number: US-BIOGENIDEC-2014BI014334

PATIENT
  Age: 38 Year
  Sex: Female

DRUGS (15)
  1. TECFIDERA [Suspect]
     Indication: MULTIPLE SCLEROSIS
     Route: 048
     Dates: start: 20140127
  2. TECFIDERA [Suspect]
     Indication: MULTIPLE SCLEROSIS
     Route: 048
     Dates: start: 20140128, end: 20140203
  3. TECFIDERA [Suspect]
     Indication: MULTIPLE SCLEROSIS
     Route: 048
     Dates: start: 20140203
  4. TECFIDERA [Suspect]
     Indication: MULTIPLE SCLEROSIS
     Route: 048
     Dates: start: 20140204
  5. TRAZODONE [Concomitant]
  6. CYLOBENOPRINE [Concomitant]
  7. BACLOFEN [Concomitant]
  8. VITAMIN D [Concomitant]
  9. VITAMIN E [Concomitant]
  10. CALCIUM [Concomitant]
  11. FISH OIL [Concomitant]
  12. BIOTIN [Concomitant]
  13. GREEN TEA EXTRACT [Concomitant]
  14. SYNTHROID [Concomitant]
  15. VITAMIN B12 [Concomitant]

REACTIONS (8)
  - Alopecia [Not Recovered/Not Resolved]
  - Headache [Not Recovered/Not Resolved]
  - Sensation of heaviness [Unknown]
  - Asthenia [Unknown]
  - Fatigue [Not Recovered/Not Resolved]
  - Nausea [Not Recovered/Not Resolved]
  - Flushing [Recovered/Resolved]
  - Diarrhoea [Not Recovered/Not Resolved]
